FAERS Safety Report 15760993 (Version 2)
Quarter: 2018Q4

REPORT INFORMATION
  Report Type: Spontaneous
  Country: US (occurrence: US)
  Receive Date: 20181226
  Receipt Date: 20181227
  Transmission Date: 20190205
  Serious: No
  Sender: FDA-Public Use
  Company Number: US-PFIZER INC-2018522060

PATIENT
  Age: 68 Year
  Sex: Female
  Weight: 71.67 kg

DRUGS (2)
  1. VENLAFAXINE HCL [Suspect]
     Active Substance: VENLAFAXINE HYDROCHLORIDE
     Indication: MOOD SWINGS
     Dosage: UNK, 1X/DAY
  2. VENLAFAXINE HCL [Suspect]
     Active Substance: VENLAFAXINE HYDROCHLORIDE
     Indication: HOT FLUSH
     Dosage: UNK, 2X/DAY

REACTIONS (4)
  - Vomiting [Unknown]
  - Malaise [Unknown]
  - Nausea [Recovered/Resolved]
  - Product use in unapproved indication [Unknown]
